FAERS Safety Report 7659058-9 (Version None)
Quarter: 2011Q3

REPORT INFORMATION
  Report Type: 
  Country: None (occurrence: None)
  Receive Date: 20110805
  Receipt Date: 20110802
  Transmission Date: 20111222
  Serious: Yes (Other)
  Sender: FDA-Public Use
  Company Number: BR-PFIZER INC-2011176038

PATIENT
  Age: 24 Year
  Sex: Male
  Weight: 80 kg

DRUGS (2)
  1. VIVACOR [Concomitant]
     Indication: BLOOD CHOLESTEROL
     Dosage: 10 MG, 1X/DAY
  2. VIAGRA [Suspect]
     Dosage: 50 MG, UNK
     Route: 048

REACTIONS (3)
  - PALPITATIONS [None]
  - RENAL COLIC [None]
  - FORMICATION [None]
